FAERS Safety Report 20196223 (Version 2)
Quarter: 2021Q4

REPORT INFORMATION
  Report Type: Spontaneous
  Country: DE (occurrence: DE)
  Receive Date: 20211216
  Receipt Date: 20211231
  Transmission Date: 20220304
  Serious: Yes (Hospitalization, Disabling, Other)
  Sender: FDA-Public Use
  Company Number: DE-TEVA-2021-DE-1986740

PATIENT
  Age: 75 Year
  Sex: Male

DRUGS (7)
  1. SULFAMETHOXAZOLE\TRIMETHOPRIM [Suspect]
     Active Substance: SULFAMETHOXAZOLE\TRIMETHOPRIM
     Indication: Nocardiosis
     Dosage: 2880 MILLIGRAM DAILY; FOR 14 MONTHS
     Route: 048
     Dates: start: 2018
  2. PREDNISONE [Suspect]
     Active Substance: PREDNISONE
     Indication: Inflammatory bowel disease
     Dosage: 20-100MG
     Route: 048
  3. PREDNISONE [Suspect]
     Active Substance: PREDNISONE
     Indication: Diarrhoea haemorrhagic
     Dosage: 40 MILLIGRAM DAILY;
     Route: 048
  4. AMPICILLIN SODIUM\SULBACTAM SODIUM [Suspect]
     Active Substance: AMPICILLIN SODIUM\SULBACTAM SODIUM
     Indication: Nocardiosis
     Dosage: 9000 MILLIGRAM DAILY; FOR 4 DAYS
     Route: 042
     Dates: start: 201801
  5. AMIKACIN [Suspect]
     Active Substance: AMIKACIN
     Indication: Nocardiosis
     Dosage: 1500 MILLIGRAM DAILY;
     Route: 042
     Dates: start: 2018
  6. MEROPENEM [Suspect]
     Active Substance: MEROPENEM
     Indication: Nocardiosis
     Dosage: 3000 MILLIGRAM DAILY;
     Route: 042
     Dates: start: 201801
  7. INTERFERON GAMMA [Concomitant]
     Active Substance: INTERFERON GAMMA
     Indication: Nocardiosis
     Dosage: 100MCG 3 TIMES PER WEEK FOR 22 MONTHS
     Route: 058
     Dates: start: 2018

REACTIONS (4)
  - Nocardiosis [Recovered/Resolved]
  - Deafness [Unknown]
  - Renal impairment [Unknown]
  - Therapy non-responder [Unknown]

NARRATIVE: CASE EVENT DATE: 20180101
